FAERS Safety Report 10881636 (Version 1)
Quarter: 2015Q1

REPORT INFORMATION
  Report Type: Spontaneous
  Country: SE (occurrence: SE)
  Receive Date: 20150303
  Receipt Date: 20150303
  Transmission Date: 20150721
  Serious: Yes (Life-Threatening)
  Sender: FDA-Public Use
  Company Number: SE-SA-2015SA023690

PATIENT
  Age: 49 Year
  Sex: Female

DRUGS (6)
  1. MERONEM [Concomitant]
     Active Substance: MEROPENEM
     Dosage: DOSAGE FORM:POWDER FOR INJECTIOKTIONS- / INFUSION LIQUID SOLUTION
  2. THYMOGLOBULINE [Suspect]
     Active Substance: LAPINE T-LYMPHOCYTE IMMUNE GLOBULIN
     Indication: BONE MARROW CONDITIONING REGIMEN
     Dosage: 512 ML GIVEN OUT OF PLANNED 1000 ML
     Route: 041
     Dates: start: 20140624, end: 20140624
  3. MYLERAN [Concomitant]
     Active Substance: BUSULFAN
  4. FLUDARA [Concomitant]
     Active Substance: FLUDARABINE PHOSPHATE
  5. ALVEDON [Concomitant]
     Active Substance: ACETAMINOPHEN
  6. MABCAMPATH [Concomitant]
     Active Substance: ALEMTUZUMAB
     Dates: start: 201406

REACTIONS (5)
  - Acute respiratory distress syndrome [Recovered/Resolved]
  - Lung infiltration [Recovered/Resolved]
  - Tachycardia [Recovered/Resolved]
  - Tachypnoea [Recovered/Resolved]
  - Dyspnoea [Recovered/Resolved]

NARRATIVE: CASE EVENT DATE: 20140624
